FAERS Safety Report 25539168 (Version 3)
Quarter: 2025Q3

REPORT INFORMATION
  Report Type: Spontaneous
  Country: JP (occurrence: JP)
  Receive Date: 20250710
  Receipt Date: 20250903
  Transmission Date: 20251021
  Serious: Yes (Disabling, Other)
  Sender: PFIZER
  Company Number: JP-ONO-2025JP011151AA

PATIENT
  Age: 6 Decade
  Sex: Female

DRUGS (4)
  1. BRAFTOVI [Suspect]
     Active Substance: ENCORAFENIB
     Indication: Malignant melanoma
     Route: 048
     Dates: end: 202501
  2. MEKTOVI [Suspect]
     Active Substance: BINIMETINIB
     Indication: Malignant melanoma
     Route: 048
     Dates: end: 202501
  3. OPDIVO [Suspect]
     Active Substance: NIVOLUMAB
     Indication: Malignant melanoma
     Route: 041
     Dates: start: 202502
  4. YERVOY [Suspect]
     Active Substance: IPILIMUMAB
     Indication: Malignant melanoma
     Route: 041
     Dates: start: 202502

REACTIONS (5)
  - Monoplegia [Unknown]
  - Myelitis [Not Recovered/Not Resolved]
  - Gait disturbance [Unknown]
  - Defaecation disorder [Unknown]
  - Dysuria [Unknown]

NARRATIVE: CASE EVENT DATE: 20250501
